FAERS Safety Report 4948875-1 (Version None)
Quarter: 2006Q1

REPORT INFORMATION
  Report Type: 
  Country: None (occurrence: None)
  Receive Date: 20060316
  Receipt Date: 20060223
  Transmission Date: 20060701
  Serious: No
  Sender: FDA-Public Use
  Company Number: 20062850

PATIENT
  Age: 57 Year
  Sex: Female

DRUGS (1)
  1. LIORESAL [Suspect]
     Indication: MUSCLE SPASTICITY
     Dosage: 200-500 MCG, DAILY, INTRATHECA
     Route: 037

REACTIONS (4)
  - IMPLANT SITE REACTION [None]
  - MASS [None]
  - MUSCLE SPASTICITY [None]
  - SPINAL CORD DISORDER [None]
